FAERS Safety Report 25943961 (Version 4)
Quarter: 2025Q4

REPORT INFORMATION
  Report Type: Spontaneous
  Country: US (occurrence: US)
  Receive Date: 20251021
  Receipt Date: 20251120
  Transmission Date: 20260117
  Serious: Yes (Hospitalization)
  Sender: JOHNSON AND JOHNSON
  Company Number: US-JNJFOC-20251019689

PATIENT

DRUGS (1)
  1. CARVYKTI [Suspect]
     Active Substance: CILTACABTAGENE AUTOLEUCEL
     Indication: Product used for unknown indication
     Route: 065
     Dates: start: 20250930, end: 20250930

REACTIONS (4)
  - Hospitalisation [Not Recovered/Not Resolved]
  - Clostridium difficile infection [Unknown]
  - Visual impairment [Not Recovered/Not Resolved]
  - Alopecia [Unknown]
